FAERS Safety Report 13382522 (Version 3)
Quarter: 2018Q1

REPORT INFORMATION
  Report Type: Report from Study
  Country: IL (occurrence: IL)
  Receive Date: 20170329
  Receipt Date: 20180201
  Transmission Date: 20180508
  Serious: Yes (Hospitalization, Other)
  Sender: FDA-Public Use
  Company Number: IL-TAKEDA-2017TUS006701

PATIENT
  Age: 0 Year
  Weight: 1.16 kg

DRUGS (1)
  1. VEDOLIZUMAB [Suspect]
     Active Substance: VEDOLIZUMAB
     Indication: PRODUCT USED FOR UNKNOWN INDICATION
     Dosage: 300 MG, UNK
     Route: 065
     Dates: start: 20160710

REACTIONS (3)
  - Kawasaki^s disease [Recovered/Resolved]
  - Foetal growth restriction [Unknown]
  - Premature baby [Recovering/Resolving]

NARRATIVE: CASE EVENT DATE: 20170301
